FAERS Safety Report 20583893 (Version 1)
Quarter: 2022Q1

REPORT INFORMATION
  Report Type: Spontaneous
  Country: US (occurrence: None)
  Receive Date: 20220311
  Receipt Date: 20220311
  Transmission Date: 20220424
  Serious: No
  Sender: FDA-Public Use
  Company Number: None

PATIENT
  Sex: Male

DRUGS (1)
  1. XELJANZ XR [Suspect]
     Active Substance: TOFACITINIB CITRATE
     Indication: Rheumatoid arthritis
     Dosage: 11MG DAILY ORAL?
     Route: 048
     Dates: start: 20220124

REACTIONS (7)
  - Tendon rupture [None]
  - Therapeutic product effect decreased [None]
  - Therapy interrupted [None]
  - Joint stiffness [None]
  - Peripheral swelling [None]
  - Sinusitis [None]
  - Unevaluable event [None]
